FAERS Safety Report 8936398 (Version 1)
Quarter: 2012Q4

REPORT INFORMATION
  Report Type: 
  Country: FR (occurrence: FR)
  Receive Date: 20121130
  Receipt Date: 20121130
  Transmission Date: 20130627
  Serious: Yes (Hospitalization)
  Sender: FDA-Public Use
  Company Number: FR-ELI_LILLY_AND_COMPANY-FR201207006679

PATIENT
  Age: 60 Year
  Sex: Female

DRUGS (6)
  1. ZYPREXA [Suspect]
     Indication: BIPOLAR DISORDER
     Dosage: 15 mg, qd
     Route: 048
  2. TERCIAN [Concomitant]
     Dosage: 1 DF, unknown
  3. PARKINANE [Concomitant]
     Dosage: 1 DF, unknown
  4. SEROPRAM [Concomitant]
     Dosage: 1 DF, unknown
  5. XANAX [Concomitant]
     Dosage: 1 DF, unknown
  6. DUPHALAC [Concomitant]
     Dosage: 1 DF, unknown

REACTIONS (5)
  - Bipolar disorder relapse prophylaxis [Unknown]
  - Cardiovascular disorder [Unknown]
  - Headache [Unknown]
  - Oedema peripheral [Unknown]
  - Intentional drug misuse [Unknown]
